FAERS Safety Report 20852666 (Version 1)
Quarter: 2022Q2

REPORT INFORMATION
  Report Type: Spontaneous
  Country: US (occurrence: None)
  Receive Date: 20220519
  Receipt Date: 20220519
  Transmission Date: 20220721
  Serious: Yes (Death)
  Sender: FDA-Public Use
  Company Number: None

PATIENT
  Sex: Male
  Weight: 91.8 kg

DRUGS (2)
  1. CARBOPLATIN [Suspect]
     Active Substance: CARBOPLATIN
     Dates: end: 20181003
  2. TAXOL [Suspect]
     Active Substance: PACLITAXEL
     Dates: end: 20181003

REACTIONS (2)
  - Acute respiratory failure [None]
  - Pain [None]

NARRATIVE: CASE EVENT DATE: 20181109
